FAERS Safety Report 17861554 (Version 1)
Quarter: 2020Q2

REPORT INFORMATION
  Report Type: Spontaneous
  Country: US (occurrence: US)
  Receive Date: 20200604
  Receipt Date: 20200604
  Transmission Date: 20200714
  Serious: Yes (Hospitalization, Other)
  Sender: FDA-Public Use
  Company Number: US-CORCEPT THERAPEUTICS INC.-US-2020CRT000671

PATIENT
  Age: 52 Year
  Sex: Female

DRUGS (2)
  1. KORLYM [Suspect]
     Active Substance: MIFEPRISTONE
     Dosage: 900 MG, QD
     Route: 048
     Dates: end: 20200525
  2. KORLYM [Suspect]
     Active Substance: MIFEPRISTONE
     Indication: CUSHING^S SYNDROME
     Dosage: 300 MG, QD
     Route: 048
     Dates: start: 201906

REACTIONS (5)
  - Hypoxia [Unknown]
  - Pneumonia [Unknown]
  - Pericardial effusion [Unknown]
  - Oedema [Unknown]
  - Adrenal mass [Unknown]

NARRATIVE: CASE EVENT DATE: 2020
